FAERS Safety Report 8303465 (Version 7)
Quarter: 2014Q3

REPORT INFORMATION
  Report Type: Report from Study
  Country: JP (occurrence: JP)
  Receive Date: 20111220
  Receipt Date: 20140902
  Transmission Date: 20150326
  Serious: Yes (Death, Hospitalization, Disabling, Other)
  Sender: FDA-Public Use
  Company Number: PHHY2010JP61640

PATIENT
  Age: 76 Year
  Sex: Male

DRUGS (35)
  1. CALCIUM POLYSTYRENE SULFONATE [Suspect]
     Active Substance: CALCIUM POLYSTYRENE SULFONATE
     Dosage: 3 DF, UNK
     Route: 048
  2. ALDACTONE [Concomitant]
     Active Substance: SPIRONOLACTONE
     Indication: PRODUCT USED FOR UNKNOWN INDICATION
     Dosage: 25 MG, UNK
     Route: 048
     Dates: start: 20101006
  3. NOVORAPID [Concomitant]
     Active Substance: INSULIN ASPART
     Dosage: 30 DF, UNK
     Route: 058
  4. BONALON [Concomitant]
     Active Substance: ALENDRONATE SODIUM
     Indication: PRODUCT USED FOR UNKNOWN INDICATION
     Dosage: 35 MG, UNK
     Route: 048
     Dates: start: 20100929
  5. MAGMITT [Concomitant]
     Active Substance: MAGNESIUM OXIDE
     Indication: PRODUCT USED FOR UNKNOWN INDICATION
     Dosage: 750 MG, UNK
     Route: 065
     Dates: start: 20100929
  6. AFINITOR [Suspect]
     Active Substance: EVEROLIMUS
     Dosage: 5 MG, DAILY
     Route: 048
     Dates: start: 20110414, end: 20110725
  7. MUCOSOLVAN [Concomitant]
     Active Substance: AMBROXOL\CLENBUTEROL
     Indication: PRODUCT USED FOR UNKNOWN INDICATION
     Dosage: 45 MG, UNK
     Route: 048
     Dates: start: 20101221
  8. LASIX [Concomitant]
     Active Substance: FUROSEMIDE
     Indication: PRODUCT USED FOR UNKNOWN INDICATION
     Dosage: 40 MG, UNK
     Route: 048
     Dates: start: 20101006
  9. NOVORAPID [Concomitant]
     Active Substance: INSULIN ASPART
     Dosage: 50 DF, UNK
     Route: 058
  10. NOVORAPID [Concomitant]
     Active Substance: INSULIN ASPART
     Dosage: 38 DF, UNK
     Route: 058
  11. OMEPRAL [Concomitant]
     Active Substance: OMEPRAZOLE
     Indication: PRODUCT USED FOR UNKNOWN INDICATION
     Dosage: 20 MG, UNK
     Route: 048
     Dates: start: 20100913
  12. AFINITOR [Suspect]
     Active Substance: EVEROLIMUS
     Indication: METASTATIC RENAL CELL CARCINOMA
     Dosage: 10 MG, DAILY
     Route: 048
     Dates: start: 20100805, end: 20100901
  13. AFINITOR [Suspect]
     Active Substance: EVEROLIMUS
     Indication: RENAL CANCER RECURRENT
     Dosage: 5 MG, DAILY
     Route: 048
     Dates: start: 20100902, end: 20100908
  14. AFINITOR [Suspect]
     Active Substance: EVEROLIMUS
     Dosage: 5 MG, DAILY
     Route: 048
     Dates: start: 20110830
  15. ARTIST [Concomitant]
     Active Substance: CARVEDILOL
     Indication: PRODUCT USED FOR UNKNOWN INDICATION
     Dosage: 20 MG, UNK
     Route: 065
     Dates: start: 20100106
  16. ZYLORIC [Concomitant]
     Active Substance: ALLOPURINOL
     Indication: PRODUCT USED FOR UNKNOWN INDICATION
     Dosage: 200 MG, UNK
     Route: 065
     Dates: start: 20091214
  17. SLOW-K [Concomitant]
     Active Substance: POTASSIUM CHLORIDE
     Indication: PRODUCT USED FOR UNKNOWN INDICATION
     Dosage: 1800 MG, UNK
     Route: 048
     Dates: start: 20100909, end: 20100930
  18. NOVORAPID [Concomitant]
     Active Substance: INSULIN ASPART
     Dosage: 48 DF, UNK
     Route: 058
  19. AMLODIN [Concomitant]
     Active Substance: AMLODIPINE BESYLATE
     Indication: PRODUCT USED FOR UNKNOWN INDICATION
     Dosage: 5 MG, UNK
     Route: 048
     Dates: start: 20110223
  20. CALCIUM POLYSTYRENE SULFONATE [Suspect]
     Active Substance: CALCIUM POLYSTYRENE SULFONATE
     Indication: PRODUCT USED FOR UNKNOWN INDICATION
     Dosage: 3 DF, UNK
     Route: 048
     Dates: start: 20091014
  21. CARDENALIN [Concomitant]
     Active Substance: DOXAZOSIN MESYLATE
     Indication: PRODUCT USED FOR UNKNOWN INDICATION
     Dosage: 4 MG, UNK
     Route: 048
     Dates: start: 20091014
  22. DEPAKENE [Concomitant]
     Active Substance: VALPROIC ACID
     Indication: PRODUCT USED FOR UNKNOWN INDICATION
     Dosage: 400 MG, UNK
     Route: 065
     Dates: start: 20070521
  23. RASILEZ (ALISKIREN) [Concomitant]
     Indication: PRODUCT USED FOR UNKNOWN INDICATION
     Dosage: 150 MG, UNK
     Route: 065
     Dates: start: 20100602
  24. NOVORAPID [Concomitant]
     Active Substance: INSULIN ASPART
     Dosage: 32 DF, UNK
     Route: 058
  25. AMLODIN [Concomitant]
     Active Substance: AMLODIPINE BESYLATE
     Dosage: 5 MG, UNK
     Route: 048
  26. AFINITOR [Suspect]
     Active Substance: EVEROLIMUS
     Dosage: 5 MG, DAILY
     Route: 048
     Dates: start: 20110106, end: 20110309
  27. ATELEC [Concomitant]
     Active Substance: CILNIDIPINE
     Indication: PRODUCT USED FOR UNKNOWN INDICATION
     Dosage: 20 MG, UNK
     Route: 048
     Dates: start: 20090610
  28. NOVORAPID [Concomitant]
     Active Substance: INSULIN ASPART
     Dosage: 12 DF, UNK
     Route: 058
  29. NOVORAPID [Concomitant]
     Active Substance: INSULIN ASPART
     Dosage: 48 DF, UNK
     Route: 058
  30. BAKTAR [Concomitant]
     Active Substance: SULFAMETHOXAZOLE\TRIMETHOPRIM
     Indication: PRODUCT USED FOR UNKNOWN INDICATION
     Dosage: 1 DF, UNK
     Route: 048
     Dates: start: 20100917, end: 20110530
  31. IRBESARTAN. [Concomitant]
     Active Substance: IRBESARTAN
     Indication: PRODUCT USED FOR UNKNOWN INDICATION
     Dosage: 100 MG, UNK
     Route: 048
     Dates: start: 20090610
  32. LUPRAC [Concomitant]
     Active Substance: TORSEMIDE
     Indication: PRODUCT USED FOR UNKNOWN INDICATION
     Dosage: 8 MG, UNK
     Route: 065
     Dates: start: 20091209
  33. NOVORAPID [Concomitant]
     Active Substance: INSULIN ASPART
     Indication: PRODUCT USED FOR UNKNOWN INDICATION
     Dosage: 9 DF, UNK
     Route: 058
     Dates: start: 20100910
  34. NOVORAPID [Concomitant]
     Active Substance: INSULIN ASPART
     Dosage: 46 DF, UNK
     Route: 058
  35. AMLODIN [Concomitant]
     Active Substance: AMLODIPINE BESYLATE
     Dosage: 10 MG, UNK
     Route: 048

REACTIONS (16)
  - Interstitial lung disease [Recovering/Resolving]
  - Pneumonia [Recovering/Resolving]
  - Renal failure chronic [Not Recovered/Not Resolved]
  - Hypoxia [Recovering/Resolving]
  - Anaemia [Recovering/Resolving]
  - Death [Fatal]
  - Surfactant protein increased [Unknown]
  - Pyrexia [Recovering/Resolving]
  - Cough [Recovering/Resolving]
  - Hypokalaemia [Recovered/Resolved]
  - Blood creatinine increased [Not Recovered/Not Resolved]
  - Metastases to liver [Not Recovered/Not Resolved]
  - Cardiac failure acute [Recovered/Resolved]
  - Respiratory failure [Recovering/Resolving]
  - Respiratory distress [Recovering/Resolving]
  - Cell marker increased [Unknown]

NARRATIVE: CASE EVENT DATE: 20100820
